FAERS Safety Report 16233114 (Version 6)
Quarter: 2020Q1

REPORT INFORMATION
  Report Type: Spontaneous
  Country: US (occurrence: US)
  Receive Date: 20190424
  Receipt Date: 20200326
  Transmission Date: 20200409
  Serious: Yes (Disabling, Other)
  Sender: FDA-Public Use
  Company Number: US-PFIZER INC-2019171966

PATIENT
  Age: 66 Year
  Sex: Female

DRUGS (1)
  1. XELJANZ XR [Suspect]
     Active Substance: TOFACITINIB CITRATE
     Indication: RHEUMATOID ARTHRITIS
     Dosage: 11 MG, UNK

REACTIONS (6)
  - Dysgraphia [Unknown]
  - Malaise [Recovered/Resolved]
  - Condition aggravated [Unknown]
  - Musculoskeletal disorder [Unknown]
  - Drug ineffective [Unknown]
  - Movement disorder [Unknown]
